FAERS Safety Report 10146881 (Version 1)
Quarter: 2014Q2

REPORT INFORMATION
  Report Type: Spontaneous
  Country: US (occurrence: None)
  Receive Date: 20140430
  Receipt Date: 20140430
  Transmission Date: 20141212
  Serious: Yes (Hospitalization)
  Sender: FDA-Public Use
  Company Number: None

PATIENT
  Age: 69 Year
  Sex: Male

DRUGS (13)
  1. METFORMIN [Suspect]
     Indication: HYPERGLYCAEMIA
     Route: 048
     Dates: end: 20130821
  2. AMLODIPINE [Concomitant]
  3. ASA [Concomitant]
  4. WARFARIN [Concomitant]
  5. CYCLOBENZAPRINE [Concomitant]
  6. TOLTERODINE [Concomitant]
  7. GLYBURIDE [Concomitant]
  8. LISINOPRIL [Concomitant]
  9. MORPHINE [Concomitant]
  10. RANITIDINE [Concomitant]
  11. LEVOTHYROXINE [Concomitant]
  12. TEMAZEPAM [Concomitant]
  13. TOPIRAMATE [Concomitant]

REACTIONS (4)
  - Hypoglycaemia [None]
  - Renal failure acute [None]
  - Vision blurred [None]
  - Tremor [None]
